FAERS Safety Report 4582564-0 (Version None)
Quarter: 2005Q1

REPORT INFORMATION
  Report Type: 
  Country: None (occurrence: None)
  Receive Date: 20050125
  Receipt Date: 20040914
  Transmission Date: 20050727
  Serious: No
  Sender: FDA-Public Use
  Company Number: USA040874186

PATIENT
  Age: 54 Year
  Sex: Female
  Weight: 83 kg

DRUGS (29)
  1. FORTEO [Suspect]
     Indication: OSTEOPOROSIS
     Dosage: 20 UG DAY
     Dates: start: 20040809, end: 20040811
  2. ELAVIL [Concomitant]
  3. AMOXICILLIN [Concomitant]
  4. THYROID TAB [Concomitant]
  5. ELMIRON [Concomitant]
  6. FOSAMAX [Concomitant]
  7. HUMIBID LA (GUAIFENESIN L.A.) [Concomitant]
  8. HYDROXYZINE PAMOATE [Concomitant]
  9. NEURONTIN (GABAPENTIN PFIZER) [Concomitant]
  10. PENTASA [Concomitant]
  11. PREVACID [Concomitant]
  12. PROGESTERONE [Concomitant]
  13. PROMETRIUM [Concomitant]
  14. TIZANIDINE HCL [Concomitant]
  15. ZOLOFT [Concomitant]
  16. VITAMIN B-12 [Concomitant]
  17. ESTER-C (CALCIUM ASCORBATE) [Concomitant]
  18. VITAMIN E [Concomitant]
  19. PRELIEF CALCIUM GLYCEROPHOSPHATE) [Concomitant]
  20. CHLORZOXAZONE [Concomitant]
  21. PARACETAMOL W/TRAMADOL [Concomitant]
  22. ULTRAM (TAMADOL HYDROCHLORIDE) [Concomitant]
  23. TAGAMET [Concomitant]
  24. BEXTRA [Concomitant]
  25. CATAPRES (CLONIDINE HYDRCHLORIDE) [Concomitant]
  26. VASOMOTOR SYMPTOMS [Concomitant]
  27. PERIACTIN (CYPROPHEPTADINE HYDROCHLORIDE) [Concomitant]
  28. ESTRACE [Concomitant]
  29. MOBIC [Concomitant]

REACTIONS (2)
  - HEART RATE IRREGULAR [None]
  - PALPITATIONS [None]
